FAERS Safety Report 10192373 (Version 2)
Quarter: 2014Q2

REPORT INFORMATION
  Report Type: Report from Study
  Country: AR (occurrence: AR)
  Receive Date: 20140523
  Receipt Date: 20140616
  Transmission Date: 20141212
  Serious: Yes (Other)
  Sender: FDA-Public Use
  Company Number: AR-ABBVIE-14P-007-1237698-00

PATIENT
  Age: 54 Year
  Sex: Female

DRUGS (2)
  1. HUMIRA [Suspect]
     Indication: PSORIATIC ARTHROPATHY
     Route: 058
     Dates: start: 20130313, end: 201404
  2. HUMIRA [Suspect]
     Route: 058
     Dates: start: 20140507

REACTIONS (8)
  - Delirium [Recovering/Resolving]
  - Speech disorder [Recovering/Resolving]
  - Tremor [Recovering/Resolving]
  - Asthenia [Recovering/Resolving]
  - Asthenia [Recovering/Resolving]
  - Memory impairment [Recovering/Resolving]
  - Syncope [Recovering/Resolving]
  - Balance disorder [Recovering/Resolving]
